FAERS Safety Report 13576413 (Version 1)
Quarter: 2017Q2

REPORT INFORMATION
  Report Type: Spontaneous
  Country: HR (occurrence: HR)
  Receive Date: 20170524
  Receipt Date: 20170524
  Transmission Date: 20170830
  Serious: Yes (Other)
  Sender: FDA-Public Use
  Company Number: HR-CIPLA LTD.-2017HR08920

PATIENT

DRUGS (4)
  1. NORMABEL [Suspect]
     Active Substance: DIAZEPAM
     Dosage: 150 MG, UNK
     Route: 048
     Dates: start: 20170221, end: 20170221
  2. SEROQUEL [Suspect]
     Active Substance: QUETIAPINE FUMARATE
     Dosage: 4 G, UNK
     Route: 048
     Dates: start: 20170221, end: 20170221
  3. COAXIL [Suspect]
     Active Substance: TIANEPTINE SODIUM
     Dosage: 187.5 MG, UNK
     Route: 048
     Dates: start: 20170221, end: 20170221
  4. RISPERIDONE. [Suspect]
     Active Substance: RISPERIDONE
     Dosage: UNK
     Route: 048
     Dates: start: 20170221, end: 20170221

REACTIONS (4)
  - Hypotension [Recovered/Resolved]
  - Intentional overdose [Unknown]
  - Somnolence [Unknown]
  - Suicide attempt [Unknown]

NARRATIVE: CASE EVENT DATE: 20170221
